FAERS Safety Report 11999698 (Version 1)
Quarter: 2016Q1

REPORT INFORMATION
  Report Type: Spontaneous
  Country: US (occurrence: None)
  Receive Date: 20160203
  Receipt Date: 20160203
  Transmission Date: 20160526
  Serious: Yes (Hospitalization)
  Sender: FDA-Public Use
  Company Number: None

PATIENT
  Age: 65 Year
  Sex: Male
  Weight: 90.72 kg

DRUGS (6)
  1. CELESTONE [Suspect]
     Active Substance: BETAMETHASONE
     Indication: PAIN IN EXTREMITY
     Dosage: 008
     Dates: start: 20151216
  2. BUPIVACINE [Suspect]
     Active Substance: BUPIVACAINE
     Indication: BACK PAIN
     Dosage: 008
     Dates: start: 20151216
  3. ADVAIR HFA [Concomitant]
     Active Substance: FLUTICASONE PROPIONATE\SALMETEROL XINAFOATE
  4. PROAIR HFA [Concomitant]
     Active Substance: ALBUTEROL SULFATE
  5. BUPIVACINE [Suspect]
     Active Substance: BUPIVACAINE
     Indication: PAIN IN EXTREMITY
     Dosage: 008
     Dates: start: 20151216
  6. CELESTONE [Suspect]
     Active Substance: BETAMETHASONE
     Indication: BACK PAIN
     Dosage: 008
     Dates: start: 20151216

REACTIONS (3)
  - Post procedural complication [None]
  - Headache [None]
  - Muscle spasms [None]

NARRATIVE: CASE EVENT DATE: 20151216
